FAERS Safety Report 4653770-1 (Version None)
Quarter: 2005Q2

REPORT INFORMATION
  Report Type: 
  Country: None (occurrence: None)
  Receive Date: 20050504
  Receipt Date: 20050421
  Transmission Date: 20051028
  Serious: Yes (Hospitalization, Other)
  Sender: FDA-Public Use
  Company Number: 2005064142

PATIENT
  Sex: Female
  Weight: 70.7611 kg

DRUGS (5)
  1. BEXTRA [Suspect]
     Indication: PAIN
     Dosage: 20 MG (20 MG, 1 IN 1 D), ORAL
     Route: 048
     Dates: start: 20020101, end: 20031001
  2. CELEBREX [Suspect]
     Indication: ILL-DEFINED DISORDER
  3. THYROID TAB [Concomitant]
  4. PRAVASTATIN SODIUM [Concomitant]
  5. CLOPIDOGREL SULFATE (CLOPIDODREL SULFATE) [Concomitant]

REACTIONS (5)
  - CARPAL TUNNEL SYNDROME [None]
  - DYSPEPSIA [None]
  - INTRACARDIAC THROMBUS [None]
  - MYOCARDIAL INFARCTION [None]
  - THROAT TIGHTNESS [None]
